FAERS Safety Report 8250543-8 (Version None)
Quarter: 2012Q2

REPORT INFORMATION
  Report Type: 
  Country: None (occurrence: None)
  Receive Date: 20120402
  Receipt Date: 20120328
  Transmission Date: 20120825
  Serious: Yes (Other)
  Sender: FDA-Public Use
  Company Number: US-PFIZER INC-2012079728

PATIENT
  Sex: Female
  Weight: 100 kg

DRUGS (1)
  1. EFFEXOR [Suspect]
     Indication: ANXIETY
     Dosage: 225 MG, DAILY
     Dates: start: 20040101

REACTIONS (7)
  - BLOOD CHOLESTEROL INCREASED [None]
  - CARDIAC DISORDER [None]
  - PAIN IN JAW [None]
  - BLOOD PRESSURE INCREASED [None]
  - ATRIOVENTRICULAR BLOCK [None]
  - ABDOMINAL DISCOMFORT [None]
  - CHEST PAIN [None]
